FAERS Safety Report 6276135-8 (Version None)
Quarter: 2009Q3

REPORT INFORMATION
  Report Type: 
  Country: None (occurrence: None)
  Receive Date: 20090720
  Receipt Date: 20090720
  Transmission Date: 20100115
  Serious: Yes (Other)
  Sender: FDA-Public Use
  Company Number: None

PATIENT
  Sex: Female

DRUGS (1)
  1. SERTRALINE [Suspect]
     Indication: DEPRESSION
     Dosage: 100 MG QD ORAL
     Route: 048
     Dates: start: 20070201, end: 20080301

REACTIONS (4)
  - ANHEDONIA [None]
  - DEPRESSION [None]
  - LETHARGY [None]
  - PRODUCT SUBSTITUTION ISSUE [None]
